FAERS Safety Report 19835241 (Version 1)
Quarter: 2021Q3

REPORT INFORMATION
  Report Type: Spontaneous
  Country: DE (occurrence: DE)
  Receive Date: 20210916
  Receipt Date: 20210916
  Transmission Date: 20211014
  Serious: Yes (Death, Life-Threatening, Hospitalization, Other)
  Sender: FDA-Public Use
  Company Number: DE-DRREDDYS-SPO/GER/21/0138094

PATIENT
  Age: 55 Year
  Sex: Female
  Weight: 52.4 kg

DRUGS (13)
  1. ONDANSETRON [Suspect]
     Active Substance: ONDANSETRON
     Indication: PRODUCT USED FOR UNKNOWN INDICATION
     Dates: start: 20210317, end: 20210326
  2. GILTERITINIB [Suspect]
     Active Substance: GILTERITINIB
     Indication: PRODUCT USED FOR UNKNOWN INDICATION
     Dates: start: 20210324, end: 20210406
  3. CYTARABINE. [Suspect]
     Active Substance: CYTARABINE
     Dates: start: 20210322
  4. DAUNORUBICIN [Suspect]
     Active Substance: DAUNORUBICIN
     Dates: start: 20210317
  5. CYTARABINE. [Suspect]
     Active Substance: CYTARABINE
     Indication: PRODUCT USED FOR UNKNOWN INDICATION
     Dates: start: 20210317
  6. DAUNORUBICIN [Suspect]
     Active Substance: DAUNORUBICIN
     Dates: start: 20210317, end: 20210319
  7. GILTERITINIB [Suspect]
     Active Substance: GILTERITINIB
     Dates: start: 20210406
  8. CYTARABINE. [Suspect]
     Active Substance: CYTARABINE
     Dates: start: 20210318, end: 20210322
  9. DAUNORUBICIN [Suspect]
     Active Substance: DAUNORUBICIN
     Indication: PRODUCT USED FOR UNKNOWN INDICATION
     Dates: start: 20210319
  10. CYTARABINE. [Suspect]
     Active Substance: CYTARABINE
     Dates: start: 20210323, end: 20210323
  11. CYTARABINE. [Suspect]
     Active Substance: CYTARABINE
     Dates: start: 20210317, end: 20210317
  12. POSACONAZOLE [Suspect]
     Active Substance: POSACONAZOLE
     Indication: PRODUCT USED FOR UNKNOWN INDICATION
     Dates: start: 20210204
  13. ONDANSETRON [Suspect]
     Active Substance: ONDANSETRON
     Dosage: UNK

REACTIONS (20)
  - Death [Fatal]
  - Septic shock [Fatal]
  - Electrocardiogram ST segment depression [Unknown]
  - Atypical pneumonia [Not Recovered/Not Resolved]
  - Lung opacity [Unknown]
  - Respiratory disorder [Unknown]
  - Cardiogenic shock [Fatal]
  - Left atrial hypertrophy [Unknown]
  - Lung infiltration [Unknown]
  - Respiratory failure [Not Recovered/Not Resolved]
  - Herpes simplex [Unknown]
  - Electrocardiogram PR shortened [Unknown]
  - Ejection fraction decreased [Not Recovered/Not Resolved]
  - Pleural effusion [Unknown]
  - Pulmonary oedema [Not Recovered/Not Resolved]
  - Tachycardia [Not Recovered/Not Resolved]
  - Staphylococcal infection [Not Recovered/Not Resolved]
  - Cardiac dysfunction [Not Recovered/Not Resolved]
  - Electrocardiogram QT prolonged [Not Recovered/Not Resolved]
  - Organ failure [Not Recovered/Not Resolved]

NARRATIVE: CASE EVENT DATE: 20210324
